FAERS Safety Report 8031059-0 (Version None)
Quarter: 2012Q1

REPORT INFORMATION
  Report Type: 
  Country: None (occurrence: None)
  Receive Date: 20120109
  Receipt Date: 20120103
  Transmission Date: 20120608
  Serious: Yes (Other)
  Sender: FDA-Public Use
  Company Number: US-US-EMD SERONO, INC.-7104908

PATIENT
  Sex: Female

DRUGS (1)
  1. REBIF [Suspect]
     Indication: PRODUCT USED FOR UNKNOWN INDICATION
     Route: 058
     Dates: start: 20061116

REACTIONS (6)
  - CONSTIPATION [None]
  - ABDOMINAL DISCOMFORT [None]
  - OTOSCLEROSIS [None]
  - ATAXIA [None]
  - THYROID DISORDER [None]
  - FATIGUE [None]
